FAERS Safety Report 7356502-1 (Version None)
Quarter: 2011Q1

REPORT INFORMATION
  Report Type: 
  Country: None (occurrence: None)
  Receive Date: 20110316
  Receipt Date: 20110302
  Transmission Date: 20110831
  Serious: Yes (Other)
  Sender: FDA-Public Use
  Company Number: PHHY2011JP15899

PATIENT
  Sex: Female

DRUGS (2)
  1. MYCOPHENOLATE MOFETIL [Concomitant]
     Indication: HEART TRANSPLANT
  2. CYCLOSPORINE [Suspect]
     Indication: HEART TRANSPLANT

REACTIONS (4)
  - ATRIAL TACHYCARDIA [None]
  - FATIGUE [None]
  - BRADYCARDIA [None]
  - SICK SINUS SYNDROME [None]
